FAERS Safety Report 24343293 (Version 1)
Quarter: 2024Q3

REPORT INFORMATION
  Report Type: Other
  Country: IT (occurrence: IT)
  Receive Date: 20240920
  Receipt Date: 20240920
  Transmission Date: 20241016
  Serious: Yes (Other)
  Sender: Steriscience PTE
  Company Number: IT-PFIZER INC-2021188928

PATIENT
  Age: 69 Year
  Sex: Female

DRUGS (4)
  1. VANCOMYCIN [Suspect]
     Active Substance: VANCOMYCIN
     Indication: Staphylococcal infection
     Dosage: UNK
     Route: 065
  2. RITUXIMAB [Suspect]
     Active Substance: RITUXIMAB
     Indication: Immunosuppressant drug therapy
     Dosage: UNK
     Route: 065
  3. MEROPENEM [Suspect]
     Active Substance: MEROPENEM
     Indication: Antibiotic therapy
     Dosage: UNK
     Route: 065
  4. DAPTOMYCIN [Suspect]
     Active Substance: DAPTOMYCIN
     Indication: Staphylococcal bacteraemia
     Dosage: UNK
     Route: 065

REACTIONS (2)
  - Staphylococcal bacteraemia [Unknown]
  - Therapeutic product effect incomplete [Unknown]
